FAERS Safety Report 22017366 (Version 1)
Quarter: 2023Q1

REPORT INFORMATION
  Report Type: Spontaneous
  Country: US (occurrence: US)
  Receive Date: 20230221
  Receipt Date: 20230221
  Transmission Date: 20230417
  Serious: Yes (Hospitalization, Other)
  Sender: FDA-Public Use
  Company Number: US-BRISTOL-MYERS SQUIBB COMPANY-2023-025080

PATIENT
  Sex: Female

DRUGS (1)
  1. ELIQUIS [Suspect]
     Active Substance: APIXABAN
     Indication: Deep vein thrombosis
     Dates: start: 2023, end: 2023

REACTIONS (1)
  - Thrombosis [Unknown]

NARRATIVE: CASE EVENT DATE: 20230101
